FAERS Safety Report 19542869 (Version 2)
Quarter: 2021Q3

REPORT INFORMATION
  Report Type: Other
  Country: BR (occurrence: BR)
  Receive Date: 20210713
  Receipt Date: 20210805
  Transmission Date: 20211014
  Serious: Yes (Other)
  Sender: FDA-Public Use
  Company Number: BR-ROCHE-2837923

PATIENT
  Age: 37 Year
  Sex: Female

DRUGS (10)
  1. XOLAIR [Suspect]
     Active Substance: OMALIZUMAB
     Route: 058
     Dates: start: 20190318
  2. DOXEPIN [Suspect]
     Active Substance: DOXEPIN
     Indication: PRODUCT USED FOR UNKNOWN INDICATION
     Dosage: UNK
     Route: 065
  3. XOLAIR [Suspect]
     Active Substance: OMALIZUMAB
     Dosage: (2 AMPOULES OF 150 MG)
     Route: 065
     Dates: start: 2015
  4. XOLAIR [Suspect]
     Active Substance: OMALIZUMAB
     Indication: CHRONIC SPONTANEOUS URTICARIA
     Route: 058
     Dates: start: 201606
  5. XOLAIR [Suspect]
     Active Substance: OMALIZUMAB
     Route: 058
     Dates: start: 20190808
  6. SYNTHROID [Concomitant]
     Active Substance: LEVOTHYROXINE SODIUM
     Indication: HYPOTHYROIDISM
     Dosage: 150 MG, QD (MANY YEARS AGO)
     Route: 048
  7. XOLAIR [Suspect]
     Active Substance: OMALIZUMAB
     Dosage: UNK
     Route: 058
     Dates: start: 20180228
  8. XOLAIR [Suspect]
     Active Substance: OMALIZUMAB
     Dosage: (2 AMPOULES OF 150 MG)
     Route: 058
     Dates: start: 202104
  9. XOLAIR [Suspect]
     Active Substance: OMALIZUMAB
     Route: 058
     Dates: start: 202104, end: 202104
  10. XOLAIR [Suspect]
     Active Substance: OMALIZUMAB
     Dosage: (2 AMPOULES OF 150 MG)
     Route: 058
     Dates: start: 202105

REACTIONS (28)
  - Mass [Recovered/Resolved]
  - Mouth swelling [Not Recovered/Not Resolved]
  - Deformity [Recovered/Resolved]
  - Swelling [Recovered/Resolved]
  - Drug ineffective [Unknown]
  - Swelling face [Recovered/Resolved]
  - Skin discolouration [Recovered/Resolved]
  - Insomnia [Unknown]
  - Deformity [Recovered/Resolved]
  - Pain [Unknown]
  - Fatigue [Unknown]
  - Weight increased [Unknown]
  - Obstructive airways disorder [Recovered/Resolved]
  - Angioedema [Recovered/Resolved]
  - Discomfort [Unknown]
  - Urticaria [Recovered/Resolved]
  - Eye swelling [Recovered/Resolved]
  - Lip swelling [Recovered/Resolved]
  - Blister [Recovered/Resolved]
  - Angioedema [Recovered/Resolved]
  - Pruritus [Not Recovered/Not Resolved]
  - Hypersensitivity [Not Recovered/Not Resolved]
  - Oropharyngeal pain [Recovered/Resolved]
  - Dyspnoea [Recovered/Resolved]
  - Blister infected [Recovered/Resolved]
  - Product availability issue [Unknown]
  - Fluid retention [Unknown]
  - Therapeutic product effect delayed [Unknown]

NARRATIVE: CASE EVENT DATE: 202011
